FAERS Safety Report 5703646-3 (Version None)
Quarter: 2008Q2

REPORT INFORMATION
  Report Type: 
  Country: None (occurrence: None)
  Receive Date: 20080411
  Receipt Date: 20080328
  Transmission Date: 20081010
  Serious: Yes (Hospitalization)
  Sender: FDA-Public Use
  Company Number: DE-GENENTECH-258851

PATIENT
  Sex: Female
  Weight: 50 kg

DRUGS (6)
  1. BEVACIZUMAB [Suspect]
     Indication: NON-SMALL CELL LUNG CANCER
     Dosage: 735 MG, Q3W
     Route: 042
     Dates: start: 20071204
  2. CARBOPLATIN [Suspect]
     Indication: DRUG USE FOR UNKNOWN INDICATION
  3. NAVELBINE [Suspect]
     Indication: DRUG USE FOR UNKNOWN INDICATION
  4. DICLOFENAC SODIUM [Concomitant]
     Indication: DRUG USE FOR UNKNOWN INDICATION
     Dates: start: 20070101
  5. HYDROMORPHONE HCL [Concomitant]
     Indication: DRUG USE FOR UNKNOWN INDICATION
     Dates: start: 20070101
  6. PANTOZOL [Concomitant]
     Indication: DRUG USE FOR UNKNOWN INDICATION
     Dates: start: 20070101

REACTIONS (1)
  - ANAEMIA [None]
